FAERS Safety Report 25616219 (Version 1)
Quarter: 2025Q3

REPORT INFORMATION
  Report Type: Spontaneous
  Country: EU (occurrence: EU)
  Receive Date: 20250729
  Receipt Date: 20250729
  Transmission Date: 20251020
  Serious: Yes (Other)
  Sender: TEVA
  Company Number: None

PATIENT
  Age: 69 Year
  Sex: Male
  Weight: 83 kg

DRUGS (2)
  1. BETAMETHASONE [Suspect]
     Active Substance: BETAMETHASONE
     Indication: Psoriasis
     Dosage: APPLY TO AFFECTED AREAS ONCE A DAY; BRAND NAME NOT SPECIFIED
     Route: 003
     Dates: start: 20250314, end: 20250411
  2. CLOBETASOL [Suspect]
     Active Substance: CLOBETASOL
     Indication: Psoriasis
     Dosage: APPLY TO AFFECTED AREAS ONCE A DAY; BRAND NAME NOT SPECIFIED;?BATCH NUMBER: 963348.6
     Route: 003
     Dates: start: 20250411, end: 20250507

REACTIONS (1)
  - Erectile dysfunction [Recovered/Resolved]
